FAERS Safety Report 25353865 (Version 1)
Quarter: 2025Q2

REPORT INFORMATION
  Report Type: Report from Study
  Country: CA (occurrence: CA)
  Receive Date: 20250523
  Receipt Date: 20250523
  Transmission Date: 20250717
  Serious: Yes (Other)
  Sender: VERITY PHARMACEUTICALS INC.
  Company Number: CA-VER-202500097

PATIENT
  Age: 81 Year
  Sex: Male

DRUGS (3)
  1. TRELSTAR [Suspect]
     Active Substance: TRIPTORELIN PAMOATE
     Indication: Prostate cancer
     Dosage: POWDER FOR PROLONGED-RELEASE SUSPENSION FOR INJECT; 22.5 MILLIGRAM, ONCE / 6 MONTHS
     Route: 030
     Dates: start: 20240426, end: 20240426
  2. TRELSTAR [Suspect]
     Active Substance: TRIPTORELIN PAMOATE
     Indication: Prostate cancer
     Dosage: POWDER FOR PROLONGED-RELEASE SUSPENSION FOR INJECT; 22.5 MILLIGRAM, ONCE / 6 MONTHS
     Route: 030
     Dates: start: 20241024, end: 20241024
  3. TRELSTAR [Suspect]
     Active Substance: TRIPTORELIN PAMOATE
     Indication: Prostate cancer
     Dosage: POWDER FOR PROLONGED-RELEASE SUSPENSION FOR INJECT; 22.5 MILLIGRAM, ONCE / 6 MONTHS
     Route: 030
     Dates: start: 20250430, end: 20250430

REACTIONS (3)
  - Blood pressure systolic increased [Unknown]
  - Lung neoplasm malignant [Not Recovered/Not Resolved]
  - Inappropriate schedule of product administration [Recovered/Resolved]

NARRATIVE: CASE EVENT DATE: 20241024
